FAERS Safety Report 9176926 (Version 1)
Quarter: 2013Q1

REPORT INFORMATION
  Report Type: Spontaneous
  Country: GB (occurrence: None)
  Receive Date: 20130319
  Receipt Date: 20130319
  Transmission Date: 20140127
  Serious: Yes (Other)
  Sender: FDA-Public Use
  Company Number: GER/UKI/13/0028464

PATIENT
  Age: 64 Year
  Sex: Female
  Weight: 78 kg

DRUGS (6)
  1. ATORVASTATIN (ATORVASTATIN) [Suspect]
     Indication: PRODUCT USED FOR UNKNOWN INDICATION
     Route: 048
     Dates: start: 20130129
  2. HYDROCORTISON (HYDROCORTISONE) [Concomitant]
  3. AMLODIPINE (AMLODIPINE) [Concomitant]
  4. CETIRIZINE (CETIRIZINE) [Concomitant]
  5. OMEPRAZOLE (OMEPRAZOLE) [Concomitant]
  6. SIMVASTATIN (SIMVASTATIN) [Concomitant]

REACTIONS (3)
  - Local swelling [None]
  - Paraesthesia [None]
  - Paraesthesia [None]
